FAERS Safety Report 15948639 (Version 1)
Quarter: 2019Q1

REPORT INFORMATION
  Report Type: Spontaneous
  Country: AT (occurrence: AT)
  Receive Date: 20190211
  Receipt Date: 20190211
  Transmission Date: 20190417
  Serious: Yes (Other)
  Sender: FDA-Public Use
  Company Number: AT-CONCORDIA PHARMACEUTICALS INC.-E2B_00013372

PATIENT
  Age: 46 Year
  Sex: Female
  Weight: 64 kg

DRUGS (6)
  1. IVABRADINE [Concomitant]
     Active Substance: IVABRADINE
     Dosage: AT AGE 41Y
  2. LISINOPRIL. [Concomitant]
     Active Substance: LISINOPRIL
  3. LISINOPRIL. [Concomitant]
     Active Substance: LISINOPRIL
  4. IVABRADINE [Concomitant]
     Active Substance: IVABRADINE
  5. PREDNISOLONE. [Suspect]
     Active Substance: PREDNISOLONE
     Dosage: INITIALLY (BETWEEN AGE 39Y AND AGE 43Y)
  6. PREDNISOLONE. [Suspect]
     Active Substance: PREDNISOLONE
     Dosage: AFTER SOME WEEKS (BETWEEN AGE 39Y AND AGE 43Y)

REACTIONS (6)
  - Cardiac failure [Unknown]
  - Bundle branch block left [Unknown]
  - Myocardial fibrosis [Unknown]
  - Bundle branch block right [Unknown]
  - Systolic dysfunction [Unknown]
  - Sinus tachycardia [Unknown]
